FAERS Safety Report 15336057 (Version 2)
Quarter: 2018Q3

REPORT INFORMATION
  Report Type: Spontaneous
  Country: US (occurrence: US)
  Receive Date: 20180830
  Receipt Date: 20180905
  Transmission Date: 20181010
  Serious: Yes (Hospitalization)
  Sender: FDA-Public Use
  Company Number: US-PFIZER INC-2018346495

PATIENT
  Age: 64 Year
  Sex: Female
  Weight: 63.5 kg

DRUGS (6)
  1. LYRICA [Suspect]
     Active Substance: PREGABALIN
     Indication: SPINAL OPERATION
     Dosage: 100 MG, (TAKING 1 CAPSULE AT NIGHT)
     Route: 048
     Dates: start: 201807
  2. ACCUPRIL [Interacting]
     Active Substance: QUINAPRIL HYDROCHLORIDE
     Dosage: 20 MG, UNK
  3. VALIUM [Concomitant]
     Active Substance: DIAZEPAM
     Indication: MUSCLE SPASMS
     Dosage: UNK
  4. METOPROLOL TARTRATE. [Interacting]
     Active Substance: METOPROLOL TARTRATE
     Dosage: UNK
  5. ACCUPRIL [Interacting]
     Active Substance: QUINAPRIL HYDROCHLORIDE
     Dosage: 10 MG, UNK
  6. OXYCODONE [Concomitant]
     Active Substance: OXYCODONE
     Indication: BACK PAIN
     Dosage: UNK

REACTIONS (8)
  - Blood pressure decreased [Unknown]
  - Dysstasia [Unknown]
  - Intentional product misuse [Unknown]
  - Loss of consciousness [Unknown]
  - Drug interaction [Unknown]
  - Pain [Unknown]
  - Mobility decreased [Unknown]
  - Dyspnoea [Unknown]

NARRATIVE: CASE EVENT DATE: 20180821
